FAERS Safety Report 17316474 (Version 1)
Quarter: 2020Q1

REPORT INFORMATION
  Report Type: Spontaneous
  Country: BG (occurrence: BG)
  Receive Date: 20200124
  Receipt Date: 20200124
  Transmission Date: 20200409
  Serious: Yes (Hospitalization)
  Sender: FDA-Public Use
  Company Number: BG-MYLANLABS-2020M1007106

PATIENT
  Age: 80 Year
  Sex: Male

DRUGS (3)
  1. ACETYLSALICYLIC ACID [Suspect]
     Active Substance: ASPIRIN
     Indication: PERIPHERAL ARTERY THROMBOSIS
     Dosage: DOSAGE SCHEME: 0-0-1
     Dates: start: 2018
  2. CILOSTAZOL. [Concomitant]
     Active Substance: CILOSTAZOL
     Indication: PERIPHERAL ARTERY THROMBOSIS
     Dosage: DOSAGE SCHEME: 1-0-1
     Dates: start: 2018
  3. BISOPROLOL [Suspect]
     Active Substance: BISOPROLOL
     Indication: HYPERTENSION
     Dosage: DOSAGE SCHEME: 0-0-1
     Dates: start: 2018

REACTIONS (1)
  - Chronic pigmented purpura [Recovering/Resolving]
